FAERS Safety Report 19628043 (Version 2)
Quarter: 2022Q1

REPORT INFORMATION
  Report Type: Report from Study
  Country: US (occurrence: US)
  Receive Date: 20210729
  Receipt Date: 20220103
  Transmission Date: 20220423
  Serious: Yes (Hospitalization)
  Sender: FDA-Public Use
  Company Number: US-VERTEX PHARMACEUTICALS-2021-011281

PATIENT
  Age: 20 Year
  Sex: Male

DRUGS (21)
  1. TRIKAFTA [Suspect]
     Active Substance: ELEXACAFTOR\IVACAFTOR\TEZACAFTOR
     Indication: Cystic fibrosis
     Dosage: 2 ORANGE TABS (ELEXA 100 MG/TEZA 50 MG/IVA 75 MG) IN AM AND 1 BLUE TAB (IVA 150 MG) IN PM
     Route: 048
     Dates: start: 20191205
  2. CAYSTON [Concomitant]
     Active Substance: AZTREONAM
     Route: 065
  3. XOPENEX HFA [Concomitant]
     Active Substance: LEVALBUTEROL TARTRATE
     Dosage: INHALE 2 PUFFS BEFORE AIRWAY CLEARANCE THREE TIMES DAILY AND EVERY 4 HOURS AS NEEDED
  4. CREON [Concomitant]
     Active Substance: PANCRELIPASE AMYLASE\PANCRELIPASE LIPASE\PANCRELIPASE PROTEASE
     Dosage: 5 CAPSULES BY MOUTH WITH EACH MEAL AND 3 CAPSULES WITH EACH SNACK
     Route: 048
  5. PULMOZYME [Concomitant]
     Active Substance: DORNASE ALFA
     Dosage: 1 MG/ML INHALATION SOLUTION, ONE VIAL (2.5MG) ONCE DAILY, VEST CLEARANCE SYSTEM THREE TIMES DAILY FO
  6. ZYRTEC [Concomitant]
     Active Substance: CETIRIZINE HYDROCHLORIDE
     Indication: Hypersensitivity
     Dosage: ONE TABLET ONCE DAILY
     Route: 048
  7. LEVALBUTEROL HYDROCHLORIDE [Concomitant]
     Active Substance: LEVALBUTEROL HYDROCHLORIDE
     Dosage: 0.63MG/3ML INHALATION NEBULIZATION SOLUTION
  8. FISH OIL [Concomitant]
     Active Substance: FISH OIL
     Dosage: THREE CAPSULES ONCE DAILY
  9. TOBI PODHALER [Concomitant]
     Active Substance: TOBRAMYCIN
     Dosage: INHALE THE CONTENTS OF 4 CAPSULES VIA PODHALER TWICE DAILY, CYCLE 28 DAYS ON 28 DAYS OFF
  10. OMEPRAZOLE [Concomitant]
     Active Substance: OMEPRAZOLE
     Dosage: 1 CAPSULE BY MOUTH EVERY MORNING
  11. CALCIUM\VITAMIN D [Concomitant]
     Active Substance: CALCIUM\VITAMIN D
     Dosage: 600MG, ONE TABLET TWICE DAILY
     Route: 048
  12. ENALAPRIL [Concomitant]
     Active Substance: ENALAPRIL
     Dosage: ONE TABLET DAILY
     Route: 048
  13. FLUTICASONE [Concomitant]
     Active Substance: FLUTICASONE
     Dosage: INHALE 1 SPRAY INTO EACH NOSTRIL EVERYDAY
  14. CYPROHEPTADINE HYDROCHLORIDE [Concomitant]
     Active Substance: CYPROHEPTADINE HYDROCHLORIDE
     Dosage: TAKE TWO TABLETS NIGHTLY AT BEDTIME, TAKE FOR THREE WEEKS AND ONE WEEK OFF
     Route: 048
  15. LANTUS [Concomitant]
     Active Substance: INSULIN GLARGINE
     Dosage: 100 UNIT/ML, 20 UNITS EVERY NIGHT
     Route: 058
  16. FAMOTIDINE [Concomitant]
     Active Substance: FAMOTIDINE
     Dosage: ONE TABLET TWICE DAILY
     Route: 048
  17. CIPROFLOXACIN HYDROCHLORIDE [Concomitant]
     Active Substance: CIPROFLOXACIN HYDROCHLORIDE
     Dosage: ONE TABLET BY MOUTH TWICE A DAY
  18. AZITHROMYCIN [Concomitant]
     Active Substance: AZITHROMYCIN
     Dosage: ONE TABLET BY MOUTH THREE TIMES A WEEK ON MONDAY, WEDNESDAY AND FRIDAY
  19. URSODIOL [Concomitant]
     Active Substance: URSODIOL
     Dosage: TWO CAPSULES BY MOUTH TWICE DAILY
  20. METOCLOPRAMIDE HYDROCHLORIDE [Concomitant]
     Active Substance: METOCLOPRAMIDE HYDROCHLORIDE
     Dosage: ONE TABLET BY MOUTH TWICE DAILY BEFORE TWO MAIN MEALS OF THE DAY
  21. SODIUM CHLORIDE [Concomitant]
     Active Substance: SODIUM CHLORIDE
     Dosage: INHALE THE CONTENTS OF ONE AMPULE WITH NEBULIZER TWICE DAILY

REACTIONS (1)
  - Pneumonia [Recovered/Resolved]

NARRATIVE: CASE EVENT DATE: 20210630
